FAERS Safety Report 19710504 (Version 9)
Quarter: 2024Q2

REPORT INFORMATION
  Report Type: Report from Study
  Country: DE (occurrence: DE)
  Receive Date: 20210816
  Receipt Date: 20240614
  Transmission Date: 20240716
  Serious: Yes (Other)
  Sender: FDA-Public Use
  Company Number: DE-ROCHE-2745146

PATIENT
  Age: 57 Year
  Sex: Female
  Weight: 52.7 kg

DRUGS (47)
  1. TRASTUZUMAB [Suspect]
     Active Substance: TRASTUZUMAB
     Indication: Breast cancer
     Dosage: 336 MILLIGRAM/ INTRAVENOUS DRIP
     Route: 040
     Dates: start: 20201210, end: 20210328
  2. TRASTUZUMAB [Suspect]
     Active Substance: TRASTUZUMAB
     Dosage: 336 MILLIGRAM/ INTRAVENOUS DRIP
     Route: 040
     Dates: start: 20210518
  3. PERJETA [Suspect]
     Active Substance: PERTUZUMAB
     Indication: Breast cancer
     Dosage: 420 MILLIGRAM
     Route: 065
     Dates: start: 20201210, end: 20210328
  4. PERJETA [Suspect]
     Active Substance: PERTUZUMAB
     Dosage: 420 MILLIGRAM
     Route: 065
     Dates: start: 20210518
  5. DOCETAXEL [Suspect]
     Active Substance: DOCETAXEL\DOCETAXEL ANHYDROUS
     Indication: Breast cancer
     Dosage: 120 MILLIGRAM/ LAST DOSE (118 MG)
     Route: 065
     Dates: start: 20201118
  6. ZOLEDRONIC ACID [Suspect]
     Active Substance: ZOLEDRONIC ACID
     Indication: Metastases to bone
     Dosage: Q4WEEKS, 2ND DOSE ON 16/DEC/2020 AND 3RD DOSE ON 13/JAN/2021
     Route: 065
     Dates: start: 20201118
  7. ZOLEDRONIC ACID [Suspect]
     Active Substance: ZOLEDRONIC ACID
     Dosage: 4 MILLIGRAM
     Route: 065
     Dates: start: 20201216
  8. CALCIUM\CHOLECALCIFEROL [Concomitant]
     Active Substance: CALCIUM\CHOLECALCIFEROL
     Dosage: 400 INTERNATIONAL UNIT, QD
     Route: 048
     Dates: start: 20201118
  9. CALCIUM\CHOLECALCIFEROL [Concomitant]
     Active Substance: CALCIUM\CHOLECALCIFEROL
     Dosage: 500 MILLIGRAM, QD/ CALCIUM 500 MG / VITAMIN D 400 IU DAILY
     Route: 048
     Dates: start: 20201118
  10. DEXAMETHASONE [Concomitant]
     Active Substance: DEXAMETHASONE
     Dosage: 8 MILLIGRAM
     Route: 042
     Dates: start: 20201118, end: 20210104
  11. DEXAMETHASONE [Concomitant]
     Active Substance: DEXAMETHASONE
     Dosage: 32 MILLIGRAM
     Route: 048
     Dates: start: 20201117, end: 20210106
  12. DEXAMETHASONE [Concomitant]
     Active Substance: DEXAMETHASONE
     Dosage: 8 MILLIGRAM
     Dates: start: 20220728
  13. DEXAMETHASONE [Concomitant]
     Active Substance: DEXAMETHASONE
     Dosage: 8 MILLIGRAM
     Dates: start: 20220930, end: 20221023
  14. DEXAMETHASONE [Concomitant]
     Active Substance: DEXAMETHASONE
     Dosage: 12 MILLIGRAM/ D1 CYCLE
     Dates: start: 20230417
  15. DEXAMETHASONE [Concomitant]
     Active Substance: DEXAMETHASONE
     Dosage: 8 MILLIGRAM
     Dates: start: 20220728, end: 20230327
  16. DIMETHINDENE MALEATE [Concomitant]
     Active Substance: DIMETHINDENE MALEATE
     Dosage: 4 MILLIGRAM
     Route: 042
     Dates: start: 20201118, end: 20210104
  17. OMEPRAZOLE [Concomitant]
     Active Substance: DONEPEZIL HYDROCHLORIDE\OMEPRAZOLE\OMEPRAZOLE MAGNESIUM
     Dosage: 20 MILLIGRAM
     Route: 048
     Dates: start: 20210104, end: 20210109
  18. OMEPRAZOLE [Concomitant]
     Active Substance: DONEPEZIL HYDROCHLORIDE\OMEPRAZOLE\OMEPRAZOLE MAGNESIUM
     Dosage: 40 MILLIGRAM/ PM (AS NEEDED)
     Dates: start: 20230123
  19. OMEPRAZOLE [Concomitant]
     Active Substance: DONEPEZIL HYDROCHLORIDE\OMEPRAZOLE\OMEPRAZOLE MAGNESIUM
     Dosage: 40 MILLIGRAM, QD
     Dates: start: 20230103, end: 20230109
  20. BISOPROLOL [Concomitant]
     Active Substance: BISOPROLOL\BISOPROLOL FUMARATE
     Dosage: 2.5 MILLIGRAM (0.5 DAY)
     Route: 048
     Dates: start: 20210709, end: 20220124
  21. BISOPROLOL [Concomitant]
     Active Substance: BISOPROLOL\BISOPROLOL FUMARATE
     Dosage: 1.25 MILLIGRAM;TWICE A DAY
     Dates: start: 20220125, end: 20221215
  22. BISOPROLOL [Concomitant]
     Active Substance: BISOPROLOL\BISOPROLOL FUMARATE
     Dosage: 1.25 MILLIGRAM
     Dates: start: 20221216
  23. ELIQUIS [Concomitant]
     Active Substance: APIXABAN
     Dosage: 5 MILLIGRAM (0.5 DAY)
     Route: 048
     Dates: start: 20210709
  24. GYNOMUNAL [CHOLESTEROL;HUMULUS LUPULUS;HYALURONIC ACID;TOCOPHERYL ACET [Concomitant]
     Dosage: 2.5 MILLIGRAM
     Route: 061
     Dates: start: 20210208, end: 20210222
  25. NOVALGIN (METAMIZOLE SODIUM) [Concomitant]
     Active Substance: METAMIZOLE SODIUM
     Dosage: 500 MILLIGRAM
     Route: 048
     Dates: start: 20210104, end: 20210109
  26. NOVALGIN (METAMIZOLE SODIUM) [Concomitant]
     Active Substance: METAMIZOLE SODIUM
     Dosage: 500 MILLIGRAM
     Dates: start: 20230508
  27. SEA SALT [Concomitant]
     Active Substance: SEA SALT
     Dosage: UNK UNK, BID
     Route: 045
     Dates: start: 20211026
  28. BEPANTHEN AUGEN- UND NASENSALBE [Concomitant]
     Dosage: UNK, QD
     Route: 061
     Dates: start: 20210622
  29. GRANISETRON [Concomitant]
     Active Substance: GRANISETRON
     Dosage: 1 MILLIGRAM, PER CYCLE
     Dates: start: 20220728, end: 20230327
  30. VITAMIN C [Concomitant]
     Active Substance: ASCORBIC ACID
     Dosage: 1000 MILLIGRAM, QD
     Dates: start: 20230116, end: 20230530
  31. VITAMIN C [Concomitant]
     Active Substance: ASCORBIC ACID
     Dosage: 200 MILLIGRAM;DAILY
     Dates: start: 20230531
  32. PANTOPRAZOLE [Concomitant]
     Active Substance: PANTOPRAZOLE
     Dosage: 40 MILLIGRAM
     Dates: start: 20221017, end: 20221023
  33. ZIEXTENZO [Concomitant]
     Active Substance: PEGFILGRASTIM-BMEZ
     Dosage: UNK
  34. IBUPROFEN [Concomitant]
     Active Substance: IBUPROFEN
     Dosage: 600 MILLIGRAM, QD
     Dates: start: 20221025, end: 20221025
  35. IBUPROFEN [Concomitant]
     Active Substance: IBUPROFEN
     Dosage: 400 MILLIGRAM;PM (AS NEEDED)
     Dates: start: 20230123, end: 20230507
  36. OMEGA 3 [Concomitant]
     Active Substance: CAPSAICIN
     Dosage: UNK UNK, QD
     Dates: start: 20221216
  37. ACETAMINOPHEN [Concomitant]
     Active Substance: ACETAMINOPHEN
     Dosage: 500 MILLIGRAM, QD
     Dates: start: 20221024, end: 20221024
  38. AKYNZEO [Concomitant]
     Dosage: 300 MILLIGRAM, D1 CYCLE
     Dates: start: 20230417
  39. Nisita [Concomitant]
     Dosage: 9999.99 UNKNOWN, DAILY
     Dates: start: 20211103, end: 20220427
  40. MAGNESIUM [Concomitant]
     Active Substance: MAGNESIUM
     Dosage: 120 MILLIGRAM;THREE TIMES A DAY
     Dates: start: 20220428, end: 20221215
  41. MAGNESIUM [Concomitant]
     Active Substance: MAGNESIUM
     Dosage: 120 MILLIGRAM, QD;DAILY
     Dates: start: 20221216
  42. POLYETHYLENE GLYCOLS [Concomitant]
     Active Substance: POLYETHYLENE GLYCOLS
     Dosage: 13.12 GRAM;PM (AS NEEDED)
     Dates: start: 20230509, end: 20230512
  43. POLYETHYLENE GLYCOLS [Concomitant]
     Active Substance: POLYETHYLENE GLYCOLS
     Dosage: 13.12 GRAM, QOD
     Dates: start: 20230822
  44. POLYETHYLENE GLYCOLS [Concomitant]
     Active Substance: POLYETHYLENE GLYCOLS
     Dosage: 13.12 GRAM, QOD
     Dates: start: 20230711, end: 20230715
  45. POLYETHYLENE GLYCOLS [Concomitant]
     Active Substance: POLYETHYLENE GLYCOLS
     Dosage: 13.12 GRAM, QOD
     Dates: start: 20230620, end: 20230624
  46. POLYETHYLENE GLYCOLS [Concomitant]
     Active Substance: POLYETHYLENE GLYCOLS
     Dosage: 13.12 GRAM, QOD
     Dates: start: 20230801, end: 20230801
  47. POLYETHYLENE GLYCOLS [Concomitant]
     Active Substance: POLYETHYLENE GLYCOLS
     Dosage: 13.12 GRAM;PM (AS NEEDED)
     Dates: start: 20230530, end: 20230603

REACTIONS (12)
  - Atrial fibrillation [Recovered/Resolved]
  - Osteochondrosis [Not Recovered/Not Resolved]
  - Vulvovaginal dryness [Recovered/Resolved]
  - Abdominal pain upper [Recovered/Resolved]
  - Dry skin [Recovered/Resolved]
  - Chest pain [Recovered/Resolved]
  - Chest discomfort [Recovered/Resolved]
  - Dysgeusia [Recovered/Resolved]
  - Left ventricular dysfunction [Recovered/Resolved]
  - Anaemia [Recovered/Resolved]
  - Back pain [Not Recovered/Not Resolved]
  - Dizziness [Not Recovered/Not Resolved]

NARRATIVE: CASE EVENT DATE: 20201217
